FAERS Safety Report 13520826 (Version 1)
Quarter: 2017Q2

REPORT INFORMATION
  Report Type: Spontaneous
  Country: US (occurrence: US)
  Receive Date: 20170508
  Receipt Date: 20170508
  Transmission Date: 20170830
  Serious: No
  Sender: FDA-Public Use
  Company Number: US-B.I. PHARMACEUTICALS,INC./RIDGEFIELD-2017-BI-025013

PATIENT
  Sex: Female

DRUGS (3)
  1. PRADAXA [Suspect]
     Active Substance: DABIGATRAN ETEXILATE MESYLATE
     Indication: ATRIAL FIBRILLATION
     Dosage: ONE CAPSULE BID;  FORM STRENGTH: 150 MG; FORMULATION: CAPSULE? ADMINISTRATION CORRECT? YES ?ACTION(S
     Route: 048
     Dates: start: 2010
  2. AMIODARONE [Concomitant]
     Active Substance: AMIODARONE
     Indication: HEART RATE ABNORMAL
     Route: 065
     Dates: start: 2010
  3. ALPRAZOLAM. [Concomitant]
     Active Substance: ALPRAZOLAM
     Indication: ANXIETY
     Dosage: ONE TABLET AS NEEDED;  FORM STRENGTH: .05MG; FORMULATION: CAPLET
     Route: 048

REACTIONS (1)
  - Blood pressure increased [Unknown]
